FAERS Safety Report 7549036-2 (Version None)
Quarter: 2011Q2

REPORT INFORMATION
  Report Type: 
  Country: None (occurrence: None)
  Receive Date: 20110615
  Receipt Date: 20110607
  Transmission Date: 20111010
  Serious: Yes (Hospitalization, Other)
  Sender: FDA-Public Use
  Company Number: US-ROXANE LABORATORIES, INC.-2011-RO-00785RO

PATIENT
  Age: 18 Year
  Sex: Female

DRUGS (8)
  1. PREDNISONE [Suspect]
     Indication: TUBULOINTERSTITIAL NEPHRITIS
     Dosage: 60 MG
  2. CYCLOPHOSPHAMIDE [Suspect]
     Dosage: 50 MG
  3. SERTRALINE HYDROCHLORIDE [Suspect]
  4. SUMATRIPTAN SUCCINATE [Suspect]
  5. CONTRACEPTIVES [Concomitant]
     Route: 048
  6. PROPRANOLOL [Suspect]
  7. CYCLOPHOSPHAMIDE [Suspect]
     Indication: TUBULOINTERSTITIAL NEPHRITIS
     Dosage: 100 MG
  8. ADALIMUMAB [Suspect]
     Indication: CROHN'S DISEASE

REACTIONS (5)
  - ALOPECIA [None]
  - TUBULOINTERSTITIAL NEPHRITIS [None]
  - BLOOD CREATININE INCREASED [None]
  - ABDOMINAL DISTENSION [None]
  - PAIN IN EXTREMITY [None]
